FAERS Safety Report 5328470-5 (Version None)
Quarter: 2007Q2

REPORT INFORMATION
  Report Type: 
  Country: None (occurrence: None)
  Receive Date: 20070518
  Receipt Date: 20070505
  Transmission Date: 20071010
  Serious: Yes (Other)
  Sender: FDA-Public Use
  Company Number: US-PFIZER INC-2007036250

PATIENT
  Sex: Female

DRUGS (2)
  1. CELEBREX [Suspect]
     Indication: ARTHRITIS
  2. ZIAC [Concomitant]
     Indication: HYPERTENSION

REACTIONS (10)
  - ANKLE FRACTURE [None]
  - ARTHRITIS [None]
  - BONE DISORDER [None]
  - CALCIUM METABOLISM DISORDER [None]
  - MENOPAUSE [None]
  - METABOLIC DISORDER [None]
  - NAIL DISORDER [None]
  - PSORIASIS [None]
  - RASH [None]
  - WEIGHT INCREASED [None]
